FAERS Safety Report 8388751-8 (Version None)
Quarter: 2012Q2

REPORT INFORMATION
  Report Type: 
  Country: None (occurrence: None)
  Receive Date: 20120528
  Receipt Date: 20120515
  Transmission Date: 20120825
  Serious: Yes (Other)
  Sender: FDA-Public Use
  Company Number: FR-BRISTOL-MYERS SQUIBB COMPANY-16624926

PATIENT
  Age: 18 Year
  Sex: Female

DRUGS (5)
  1. NEUPOGEN [Suspect]
     Indication: RHABDOMYOSARCOMA
  2. DACTINOMYCIN [Suspect]
     Indication: RHABDOMYOSARCOMA
     Dosage: Q21D
  3. VINCRISTINE [Suspect]
     Indication: RHABDOMYOSARCOMA
  4. CYCLOPHOSPHAMIDE [Suspect]
     Indication: RHABDOMYOSARCOMA
     Dosage: 1 DF: 2.2G/M2
  5. MESNA [Suspect]
     Indication: RHABDOMYOSARCOMA

REACTIONS (7)
  - ANAEMIA [None]
  - NEUTROPENIA [None]
  - OLIGOHYDRAMNIOS [None]
  - NORMAL NEWBORN [None]
  - THROMBOCYTOPENIA [None]
  - FEBRILE NEUTROPENIA [None]
  - PREGNANCY [None]
